FAERS Safety Report 7134006-9 (Version None)
Quarter: 2010Q4

REPORT INFORMATION
  Report Type: 
  Country: None (occurrence: None)
  Receive Date: 20101117
  Receipt Date: 20101110
  Transmission Date: 20110411
  Serious: Yes (Hospitalization)
  Sender: FDA-Public Use
  Company Number: 2010S1000804

PATIENT
  Age: 45 Year
  Sex: Male
  Weight: 84.3 kg

DRUGS (9)
  1. LIVALO [Suspect]
     Indication: HYPERCHOLESTEROLAEMIA
     Dosage: 2 MG; 1X; PO
     Route: 048
     Dates: start: 20050101, end: 20100909
  2. AMARYL [Concomitant]
  3. SITAGLIPTIN PHOSPHATE HYDRATE [Concomitant]
  4. BLOPRESS [Concomitant]
  5. ARTIST [Concomitant]
  6. LIRAGLUTIDE [Concomitant]
  7. METFORMIN HCL [Concomitant]
  8. ASPIRIN [Concomitant]
  9. DIGOXIN [Concomitant]

REACTIONS (1)
  - RHABDOMYOLYSIS [None]
